FAERS Safety Report 23687892 (Version 1)
Quarter: 2024Q1

REPORT INFORMATION
  Report Type: Spontaneous
  Country: US (occurrence: None)
  Receive Date: 20240329
  Receipt Date: 20240329
  Transmission Date: 20240410
  Serious: No
  Sender: FDA-Public Use
  Company Number: None

PATIENT
  Age: 57 Year
  Sex: Female

DRUGS (4)
  1. NUEDEXTA [Suspect]
     Active Substance: DEXTROMETHORPHAN HYDROBROMIDE\QUINIDINE SULFATE
     Dosage: FREQUENCY : TWICE A DAY;?
     Dates: start: 20230215, end: 20240318
  2. RILUZOLE [Concomitant]
     Active Substance: RILUZOLE
  3. GLYCOPYRROLATE [Concomitant]
     Active Substance: GLYCOPYRROLATE
  4. GABAPENTIN [Concomitant]
     Active Substance: GABAPENTIN

REACTIONS (1)
  - Vaginal haemorrhage [None]
